FAERS Safety Report 5097999-X (Version None)
Quarter: 2006Q3

REPORT INFORMATION
  Report Type: 
  Country: None (occurrence: None)
  Receive Date: 20060905
  Receipt Date: 20060905
  Transmission Date: 20061208
  Serious: Yes (Hospitalization)
  Sender: FDA-Public Use
  Company Number: None

PATIENT
  Age: 65 Year
  Sex: Male
  Weight: 28.9 kg

DRUGS (8)
  1. CAPECITABINE 1650 MG BID [Suspect]
     Indication: COLON CANCER METASTATIC
     Dosage: 1650 MG BID PO
     Route: 048
     Dates: start: 20060801, end: 20060813
  2. IRINOTECON 476 MG Q 21 D [Suspect]
     Indication: COLON CANCER METASTATIC
     Dosage: 476 MG Q 21 D IV
     Route: 042
     Dates: start: 20060801
  3. ACIPHEX [Concomitant]
  4. OXYCODONE HCL [Concomitant]
  5. KYTRI; [Concomitant]
  6. UROXATRAL [Concomitant]
  7. PHENERGAN [Concomitant]
  8. ZOFRAN [Concomitant]

REACTIONS (4)
  - ABDOMINAL PAIN [None]
  - DIARRHOEA [None]
  - NAUSEA [None]
  - VOMITING [None]
